FAERS Safety Report 21056064 (Version 1)
Quarter: 2022Q3

REPORT INFORMATION
  Report Type: Spontaneous
  Country: TN (occurrence: None)
  Receive Date: 20220708
  Receipt Date: 20220708
  Transmission Date: 20221026
  Serious: Yes (Hospitalization)
  Sender: FDA-Public Use
  Company Number: TN-ACS-20220051

PATIENT
  Age: 38 Year
  Sex: Female

DRUGS (3)
  1. CEFAZOLIN [Suspect]
     Active Substance: CEFAZOLIN
     Dosage: ()
     Route: 030
  2. MEGLUMINE ANTIMONIATE [Suspect]
     Active Substance: MEGLUMINE ANTIMONIATE
     Indication: Cutaneous leishmaniasis
     Dosage: (30MG/KG/D)
  3. MEGLUMINE ANTIMONIATE [Suspect]
     Active Substance: MEGLUMINE ANTIMONIATE
     Indication: Cutaneous leishmaniasis
     Dosage: (60MG/KG/D)
     Route: 030

REACTIONS (1)
  - Fat necrosis [Recovered/Resolved]
